FAERS Safety Report 20956237 (Version 1)
Quarter: 2022Q2

REPORT INFORMATION
  Report Type: Spontaneous
  Country: US (occurrence: None)
  Receive Date: 20220614
  Receipt Date: 20220614
  Transmission Date: 20220721
  Serious: Yes (Hospitalization)
  Sender: FDA-Public Use
  Company Number: None

PATIENT
  Age: 76 Year
  Sex: Male

DRUGS (1)
  1. OXALIPLATIN [Suspect]
     Active Substance: OXALIPLATIN
     Indication: Colon cancer
     Dosage: FREQUENCY : ONCE;?
     Route: 042
     Dates: start: 20220510, end: 20220510

REACTIONS (7)
  - Hypotension [None]
  - Diarrhoea [None]
  - Nausea [None]
  - Vomiting [None]
  - Abdominal sepsis [None]
  - Bacterial infection [None]
  - Immunosuppression [None]

NARRATIVE: CASE EVENT DATE: 20220510
